FAERS Safety Report 7816900-6 (Version None)
Quarter: 2011Q4

REPORT INFORMATION
  Report Type: 
  Country: None (occurrence: None)
  Receive Date: 20111017
  Receipt Date: 20111012
  Transmission Date: 20120403
  Serious: No
  Sender: FDA-Public Use
  Company Number: US-PFIZER INC-2011224681

PATIENT
  Sex: Female

DRUGS (2)
  1. SUTENT [Suspect]
     Dosage: 25 MG, DAILY
     Route: 048
  2. SUTENT [Suspect]
     Indication: PANCREATIC NEUROENDOCRINE TUMOUR
     Dosage: 37.5 MG, DAILY
     Route: 048
     Dates: start: 20110201

REACTIONS (5)
  - COMPLICATED MIGRAINE [None]
  - ONCOLOGIC COMPLICATION [None]
  - EYE DISORDER [None]
  - ORAL PAIN [None]
  - MEMORY IMPAIRMENT [None]
